FAERS Safety Report 25844813 (Version 1)
Quarter: 2025Q3

REPORT INFORMATION
  Report Type: Spontaneous
  Country: CA (occurrence: CA)
  Receive Date: 20250925
  Receipt Date: 20250925
  Transmission Date: 20251021
  Serious: Yes (Other)
  Sender: AUROBINDO
  Company Number: CA-AUROBINDO-AUR-APL-2025-048270

PATIENT
  Age: 51 Year
  Sex: Female

DRUGS (3)
  1. TRANEXAMIC ACID [Suspect]
     Active Substance: TRANEXAMIC ACID
     Indication: Heavy menstrual bleeding
     Dosage: 1 GRAM, FOUR TIMES/DAY
     Route: 065
  2. ULIPRISTAL [Suspect]
     Active Substance: ULIPRISTAL
     Indication: Uterine leiomyoma
     Dosage: 5 MILLIGRAM, ONCE A DAY
     Route: 065
  3. ULIPRISTAL [Suspect]
     Active Substance: ULIPRISTAL
     Indication: Heavy menstrual bleeding
     Route: 065

REACTIONS (2)
  - Off label use [Recovered/Resolved]
  - Peripheral embolism [Recovered/Resolved]
